FAERS Safety Report 7647775-6 (Version None)
Quarter: 2011Q3

REPORT INFORMATION
  Report Type: 
  Country: None (occurrence: None)
  Receive Date: 20110801
  Receipt Date: 20110719
  Transmission Date: 20111222
  Serious: Yes (Death, Hospitalization)
  Sender: FDA-Public Use
  Company Number: GB-UCBSA-037338

PATIENT
  Age: 67 Year
  Sex: Male
  Weight: 73.02 kg

DRUGS (7)
  1. CERTOLIZUMAB PEGOL [Suspect]
     Indication: RHEUMATOID ARTHRITIS
     Route: 058
     Dates: start: 20110310, end: 20110605
  2. BISOPROLOL FUMARATE [Concomitant]
  3. PREDNISOLONE [Concomitant]
  4. ACEMETACIN [Concomitant]
  5. OMEPRAZOLE [Concomitant]
  6. ALENDRONIC ACID [Concomitant]
  7. CALCIUM CARBONATE [Concomitant]

REACTIONS (2)
  - ACUTE INTERSTITIAL PNEUMONITIS [None]
  - DYSPNOEA [None]
